FAERS Safety Report 20331416 (Version 2)
Quarter: 2022Q1

REPORT INFORMATION
  Report Type: Spontaneous
  Country: US (occurrence: None)
  Receive Date: 20220113
  Receipt Date: 20220128
  Transmission Date: 20220424
  Serious: Yes (Hospitalization, Other)
  Sender: FDA-Public Use
  Company Number: US-Hikma Pharmaceuticals USA Inc.-US-H14001-22-00009

PATIENT
  Sex: Female

DRUGS (2)
  1. FLECAINIDE [Suspect]
     Active Substance: FLECAINIDE
     Indication: Atrial fibrillation
     Route: 048
     Dates: start: 202101
  2. FLECAINIDE [Suspect]
     Active Substance: FLECAINIDE
     Route: 048

REACTIONS (8)
  - Adverse drug reaction [Unknown]
  - Dizziness [Unknown]
  - Visual impairment [Unknown]
  - Blindness transient [Unknown]
  - Altered state of consciousness [Unknown]
  - Drug level increased [Unknown]
  - Off label use [Unknown]
  - Blood pressure decreased [Recovering/Resolving]
